FAERS Safety Report 7809411-5 (Version None)
Quarter: 2011Q4

REPORT INFORMATION
  Report Type: 
  Country: None (occurrence: None)
  Receive Date: 20111006
  Receipt Date: 20110926
  Transmission Date: 20120403
  Serious: Yes (Other)
  Sender: FDA-Public Use
  Company Number: 2011SP045903

PATIENT
  Age: 46 Year
  Sex: Female

DRUGS (1)
  1. ROCURONIUM BROMIDE [Suspect]
     Indication: ANAESTHESIA PROCEDURE
     Dosage: IV
     Route: 042
     Dates: start: 20110919, end: 20110919

REACTIONS (3)
  - HAEMATOMA [None]
  - HYPOAESTHESIA [None]
  - DYSKINESIA [None]
